FAERS Safety Report 6834430-5 (Version None)
Quarter: 2010Q3

REPORT INFORMATION
  Report Type: 
  Country: None (occurrence: None)
  Receive Date: 20100712
  Receipt Date: 20070414
  Transmission Date: 20110219
  Serious: No
  Sender: FDA-Public Use
  Company Number: US-PFIZER INC-2007030856

PATIENT
  Sex: Male
  Weight: 63.636 kg

DRUGS (6)
  1. CHANTIX [Suspect]
     Indication: SMOKING CESSATION THERAPY
     Dates: start: 20070401
  2. TOPROL-XL [Concomitant]
  3. ACETYLSALICYLIC ACID [Concomitant]
  4. PROTONIX [Concomitant]
  5. LIPITOR [Concomitant]
  6. LORTAB [Concomitant]
     Indication: PAIN

REACTIONS (3)
  - PRURITUS [None]
  - RASH [None]
  - RASH MACULAR [None]
